FAERS Safety Report 9000492 (Version 2)
Quarter: 2013Q1

REPORT INFORMATION
  Report Type: Spontaneous
  Country: US (occurrence: US)
  Receive Date: 20130107
  Receipt Date: 20130225
  Transmission Date: 20140127
  Serious: Yes (Hospitalization)
  Sender: FDA-Public Use
  Company Number: US-BIOGENIDEC-2013BI000718

PATIENT
  Age: 42 Year
  Sex: Male

DRUGS (6)
  1. TYSABRI [Suspect]
     Indication: MULTIPLE SCLEROSIS
     Route: 042
     Dates: start: 20120910
  2. AVONEX [Concomitant]
     Indication: MULTIPLE SCLEROSIS
     Route: 030
  3. OXYCODONE [Concomitant]
     Indication: BACK PAIN
  4. FENTANYL [Concomitant]
     Indication: BACK PAIN
     Route: 061
  5. GABAPENTIN [Concomitant]
     Indication: BACK PAIN
  6. ALBUTEROL [Concomitant]

REACTIONS (5)
  - Pneumonia [Unknown]
  - Upper respiratory tract infection [Unknown]
  - Bronchitis [Recovered/Resolved]
  - Fall [Recovered/Resolved]
  - Back injury [Unknown]
